FAERS Safety Report 25086873 (Version 2)
Quarter: 2025Q3

REPORT INFORMATION
  Report Type: Spontaneous
  Country: EU (occurrence: EU)
  Receive Date: 20250318
  Receipt Date: 20250802
  Transmission Date: 20251020
  Serious: Yes (Hospitalization, Other)
  Sender: ALEXION PHARMACEUTICALS
  Company Number: EU-AstraZeneca-CH-00824895A

PATIENT
  Sex: Female
  Weight: 95 kg

DRUGS (1)
  1. TAGRISSO [Suspect]
     Active Substance: OSIMERTINIB
     Indication: Lung neoplasm malignant
     Dates: start: 20250120

REACTIONS (13)
  - Poisoning [Recovering/Resolving]
  - Diarrhoea [Recovering/Resolving]
  - Bone disorder [Recovering/Resolving]
  - Bone pain [Recovering/Resolving]
  - Fatigue [Unknown]
  - Constipation [Unknown]
  - Vomiting [Recovered/Resolved]
  - Rash [Unknown]
  - Product dispensing error [Unknown]
  - Nausea [Recovered/Resolved]
  - Pruritus [Unknown]
  - Dry mouth [Unknown]
  - Mucosal inflammation [Unknown]
